FAERS Safety Report 20993581 (Version 1)
Quarter: 2022Q2

REPORT INFORMATION
  Report Type: Spontaneous
  Country: GB (occurrence: GB)
  Receive Date: 20220622
  Receipt Date: 20220622
  Transmission Date: 20220721
  Serious: Yes (Hospitalization, Disabling, Other)
  Sender: FDA-Public Use
  Company Number: GB-VERTEX PHARMACEUTICALS-2022-009204

PATIENT
  Age: 11 Year
  Sex: Female
  Weight: 34 kg

DRUGS (18)
  1. ELEXACAFTOR\IVACAFTOR\TEZACAFTOR [Suspect]
     Active Substance: ELEXACAFTOR\IVACAFTOR\TEZACAFTOR
     Indication: Cystic fibrosis
     Dosage: 2 TABLETS IN THE MORNING
     Route: 048
  2. ELEXACAFTOR\IVACAFTOR\TEZACAFTOR [Suspect]
     Active Substance: ELEXACAFTOR\IVACAFTOR\TEZACAFTOR
     Dosage: REDUCED DOSE
     Route: 048
     Dates: start: 2022, end: 2022
  3. ELEXACAFTOR\IVACAFTOR\TEZACAFTOR [Suspect]
     Active Substance: ELEXACAFTOR\IVACAFTOR\TEZACAFTOR
     Dosage: NORMAL DOSE
     Route: 048
     Dates: start: 2022
  4. KALYDECO [Suspect]
     Active Substance: IVACAFTOR
     Indication: Cystic fibrosis
     Dosage: AT NIGHT
     Route: 048
  5. KALYDECO [Suspect]
     Active Substance: IVACAFTOR
     Dosage: REDUCED DOSE
     Route: 048
     Dates: start: 2022, end: 2022
  6. KALYDECO [Suspect]
     Active Substance: IVACAFTOR
     Dosage: NORMAL DOSE
     Route: 048
     Dates: start: 2022
  7. CLOFAZIMINE [Suspect]
     Active Substance: CLOFAZIMINE
     Indication: Infection
     Dosage: 100 MG, QD
     Route: 065
  8. MOXIFLOXACIN [Suspect]
     Active Substance: MOXIFLOXACIN
     Indication: Infection
     Dosage: 300 MG, QD
     Route: 065
  9. POSACONAZOLE [Suspect]
     Active Substance: POSACONAZOLE
     Indication: Infection
     Dosage: 300 MG, QD
     Route: 065
     Dates: start: 20220301, end: 20220603
  10. CREON [Concomitant]
     Active Substance: PANCRELIPASE AMYLASE\PANCRELIPASE LIPASE\PANCRELIPASE PROTEASE
  11. CYCLIZINE [Concomitant]
     Active Substance: CYCLIZINE
  12. DOMPERIDONE [Concomitant]
     Active Substance: DOMPERIDONE
  13. FEXOFENADINE [Concomitant]
     Active Substance: FEXOFENADINE HYDROCHLORIDE
  14. LANSOPRAZOLE [Concomitant]
     Active Substance: LANSOPRAZOLE
  15. MONTELUKAST [Concomitant]
     Active Substance: MONTELUKAST SODIUM
  16. ONDANSETRON [Concomitant]
     Active Substance: ONDANSETRON
  17. SERETIDE [Concomitant]
     Active Substance: FLUTICASONE PROPIONATE\SALMETEROL XINAFOATE
  18. URSODIOL [Concomitant]
     Active Substance: URSODIOL

REACTIONS (8)
  - Lethargy [Recovered/Resolved]
  - Nausea [Recovered/Resolved]
  - Tremor [Recovered/Resolved]
  - Lip blister [Recovered/Resolved]
  - Skin atrophy [Recovered/Resolved]
  - Somnolence [Unknown]
  - Dizziness [Recovered/Resolved]
  - Headache [Recovered/Resolved]

NARRATIVE: CASE EVENT DATE: 20220301
